FAERS Safety Report 6963812-6 (Version None)
Quarter: 2010Q3

REPORT INFORMATION
  Report Type: 
  Country: None (occurrence: None)
  Receive Date: 20100830
  Receipt Date: 20100422
  Transmission Date: 20110219
  Serious: Yes (Other)
  Sender: FDA-Public Use
  Company Number: 009578

PATIENT
  Age: 66 Year
  Sex: Male

DRUGS (3)
  1. SAMSCA [Suspect]
     Indication: CARDIAC FAILURE
     Dosage: 15 MG, ORAL; 30 MG, ORAL
     Route: 048
     Dates: start: 20090916
  2. SAMSCA [Suspect]
     Indication: OFF LABEL USE
     Dosage: 15 MG, ORAL; 30 MG, ORAL
     Route: 048
     Dates: start: 20090916
  3. LOOP DURETCS [Concomitant]

REACTIONS (2)
  - KIDNEY TRANSPLANT REJECTION [None]
  - PNEUMONIA FUNGAL [None]
